FAERS Safety Report 13663411 (Version 2)
Quarter: 2017Q3

REPORT INFORMATION
  Report Type: Spontaneous
  Country: US (occurrence: US)
  Receive Date: 20170619
  Receipt Date: 20170725
  Transmission Date: 20171127
  Serious: No
  Sender: FDA-Public Use
  Company Number: US-PFIZER INC-2017262543

PATIENT
  Age: 72 Year
  Sex: Male
  Weight: 58 kg

DRUGS (5)
  1. XALKORI [Suspect]
     Active Substance: CRIZOTINIB
     Dosage: 250 MG, 2X/DAY
     Route: 048
     Dates: start: 20170415, end: 20170612
  2. LISINOPRIL. [Concomitant]
     Active Substance: LISINOPRIL
     Dosage: UNK
  3. XALKORI [Suspect]
     Active Substance: CRIZOTINIB
     Indication: NON-SMALL CELL LUNG CANCER
     Dosage: UNK
     Dates: start: 20170307, end: 20170612
  4. KEPPRA [Concomitant]
     Active Substance: LEVETIRACETAM
     Dosage: UNK
  5. DILTIAZEM. [Concomitant]
     Active Substance: DILTIAZEM
     Dosage: UNK

REACTIONS (1)
  - Neoplasm progression [Recovering/Resolving]

NARRATIVE: CASE EVENT DATE: 20170605
